FAERS Safety Report 20797963 (Version 1)
Quarter: 2022Q2

REPORT INFORMATION
  Report Type: Spontaneous
  Country: US (occurrence: US)
  Receive Date: 20220506
  Receipt Date: 20220506
  Transmission Date: 20220720
  Serious: No
  Sender: FDA-Public Use
  Company Number: US-BRISTOL-MYERS SQUIBB COMPANY-2022-020729

PATIENT
  Age: 71 Year
  Sex: Female
  Weight: 95.25 kg

DRUGS (1)
  1. REVLIMID [Suspect]
     Active Substance: LENALIDOMIDE
     Indication: Plasma cell myeloma
     Dosage: 21 DAYS OF A 28 DAYS CYCLE
     Route: 048

REACTIONS (5)
  - Fear [Unknown]
  - Abdominal pain upper [Unknown]
  - Diarrhoea [Unknown]
  - Myalgia [Unknown]
  - Reflux gastritis [Unknown]
